FAERS Safety Report 8338449-7 (Version None)
Quarter: 2012Q2

REPORT INFORMATION
  Report Type: 
  Country: None (occurrence: None)
  Receive Date: 20120504
  Receipt Date: 20120423
  Transmission Date: 20120825
  Serious: Yes (Death, Other)
  Sender: FDA-Public Use
  Company Number: GB-ROCHE-1065459

PATIENT

DRUGS (5)
  1. MABTHERA [Suspect]
     Indication: B-CELL LYMPHOMA
     Dosage: HALF DOSE, BOLUS
  2. DOXORUBICIN HYDROCHLORIDE [Suspect]
     Indication: B-CELL LYMPHOMA
     Dosage: HALF DOSE
  3. CYCLOPHOSPHAMIDE [Suspect]
     Indication: B-CELL LYMPHOMA
     Dosage: HALF DOSE
  4. VINCRISTINE [Suspect]
     Indication: B-CELL LYMPHOMA
     Dosage: HALF DOSE
  5. PREDNISOLONE [Suspect]
     Indication: B-CELL LYMPHOMA
     Dosage: HALF DOSE

REACTIONS (2)
  - MYOCARDIAL INFARCTION [None]
  - NEUTROPENIA [None]
